FAERS Safety Report 6188308-3 (Version None)
Quarter: 2009Q2

REPORT INFORMATION
  Report Type: 
  Country: None (occurrence: None)
  Receive Date: 20090513
  Receipt Date: 20090504
  Transmission Date: 20091009
  Serious: Yes (Hospitalization)
  Sender: FDA-Public Use
  Company Number: TR-PFIZER INC-2009208427

PATIENT

DRUGS (3)
  1. DOXAZOSIN MESYLATE [Suspect]
     Dosage: 4 MG, UNK
     Route: 048
     Dates: start: 20090430
  2. SPIRONOLACTONE [Concomitant]
  3. DILTIAZEM [Concomitant]
     Dosage: 90 MG, UNK

REACTIONS (2)
  - CEREBRAL HAEMORRHAGE [None]
  - FALL [None]
